FAERS Safety Report 9074351 (Version 1)
Quarter: 2013Q1

REPORT INFORMATION
  Report Type: Report from Study
  Country: US (occurrence: US)
  Receive Date: 20130129
  Receipt Date: 20130129
  Transmission Date: 20140127
  Serious: No
  Sender: FDA-Public Use
  Company Number: US-ABBOTT-12P-163-0918322-00

PATIENT
  Age: 77 Year
  Sex: Female

DRUGS (7)
  1. HUMIRA 40 MG/0.8 ML PEN [Suspect]
     Indication: RHEUMATOID ARTHRITIS
     Dates: start: 20120123, end: 20120402
  2. BONIVA [Concomitant]
     Indication: OSTEOPENIA
     Dosage: INFUSION EVERY THREE MONTHS
  3. ALEVE [Concomitant]
     Indication: PAIN
     Dosage: 1 AS NEEDED
     Route: 048
  4. VITAMIN D [Concomitant]
     Indication: VITAMIN SUPPLEMENTATION
     Dosage: EXTRA VITAMIN D
  5. VITAMIN C [Concomitant]
     Indication: VITAMIN SUPPLEMENTATION
  6. OMEGA 3 [Concomitant]
     Indication: MEDICAL DIET
     Dosage: DAILY
     Route: 048
  7. NAPROSYN [Concomitant]
     Indication: ARTHRALGIA
     Dosage: AS REQUIRED

REACTIONS (11)
  - Chills [Recovered/Resolved]
  - Pyrexia [Recovered/Resolved]
  - Viral infection [Recovered/Resolved]
  - Urinary tract infection [Not Recovered/Not Resolved]
  - Headache [Unknown]
  - Aphagia [Unknown]
  - Nausea [Unknown]
  - Cough [Recovering/Resolving]
  - Arthralgia [Recovering/Resolving]
  - Malaise [Recovering/Resolving]
  - Depressed mood [Recovering/Resolving]
